FAERS Safety Report 17542913 (Version 2)
Quarter: 2020Q1

REPORT INFORMATION
  Report Type: Spontaneous
  Country: FR (occurrence: FR)
  Receive Date: 20200316
  Receipt Date: 20200323
  Transmission Date: 20200409
  Serious: Yes (Other)
  Sender: FDA-Public Use
  Company Number: FR-AUROBINDO-AUR-APL-2020-012529

PATIENT
  Age: 63 Year
  Sex: Female
  Weight: 54 kg

DRUGS (2)
  1. PRAZEPAM ARROW [Suspect]
     Active Substance: PRAZEPAM
     Indication: OBSESSIVE-COMPULSIVE DISORDER
     Dosage: 25 MILLIGRAM, ONCE A DAY
     Route: 048
     Dates: start: 20190921, end: 20191025
  2. MIRTAZAPINE ARROW [Suspect]
     Active Substance: MIRTAZAPINE
     Indication: OBSESSIVE-COMPULSIVE DISORDER
     Dosage: 15 MILLIGRAM, ONCE A DAY
     Route: 048
     Dates: start: 20190921, end: 20191011

REACTIONS (3)
  - Condition aggravated [Recovered/Resolved]
  - Hallucination [Recovered/Resolved]
  - Delirium [Recovered/Resolved]

NARRATIVE: CASE EVENT DATE: 20190924
